FAERS Safety Report 6908244-1 (Version None)
Quarter: 2010Q3

REPORT INFORMATION
  Report Type: 
  Country: None (occurrence: None)
  Receive Date: 20100805
  Receipt Date: 20100729
  Transmission Date: 20110219
  Serious: Yes (Hospitalization)
  Sender: FDA-Public Use
  Company Number: JP-ROCHE-713124

PATIENT
  Sex: Female
  Weight: 41 kg

DRUGS (28)
  1. TOCILIZUMAB [Suspect]
     Indication: RHEUMATOID ARTHRITIS
     Dosage: RESCUE THERAPY
     Route: 065
     Dates: start: 20090427, end: 20100519
  2. OCRELIZUMAB [Suspect]
     Indication: RHEUMATOID ARTHRITIS
     Dosage: PATIENT WITH DRAWN FROM STUDY ON 19 OCT 2009.
     Route: 042
     Dates: start: 20080827, end: 20090223
  3. METHOTREXATE [Suspect]
     Indication: RHEUMATOID ARTHRITIS
     Route: 065
     Dates: start: 20080513, end: 20081118
  4. METHOTREXATE [Suspect]
     Route: 065
     Dates: start: 20090223, end: 20100623
  5. TACROLIMUS [Suspect]
     Indication: RHEUMATOID ARTHRITIS
     Route: 065
     Dates: start: 20070627, end: 20081125
  6. TACROLIMUS [Suspect]
     Route: 065
     Dates: start: 20090211, end: 20100701
  7. PREDNISOLONE [Suspect]
     Indication: RHEUMATOID ARTHRITIS
     Route: 065
     Dates: start: 20040603, end: 20081126
  8. PREDNISOLONE [Suspect]
     Route: 065
     Dates: start: 20081127, end: 20081209
  9. PREDNISOLONE [Suspect]
     Route: 065
     Dates: start: 20081210, end: 20081216
  10. PREDNISOLONE [Suspect]
     Route: 065
     Dates: start: 20081217, end: 20081223
  11. PREDNISOLONE [Suspect]
     Route: 065
     Dates: start: 20081224
  12. PREDNISOLONE [Suspect]
     Route: 065
     Dates: start: 20090114, end: 20090120
  13. PREDNISOLONE [Suspect]
     Route: 065
     Dates: start: 20090121, end: 20090426
  14. PREDNISOLONE [Suspect]
     Route: 065
     Dates: start: 20090427, end: 20090526
  15. PREDNISOLONE [Suspect]
     Route: 065
     Dates: start: 20090527, end: 20090609
  16. PREDNISOLONE [Suspect]
     Route: 065
     Dates: start: 20090610, end: 20091018
  17. PREDNISOLONE [Suspect]
     Route: 065
     Dates: start: 20091018, end: 20100209
  18. PREDNISOLONE [Suspect]
     Route: 065
     Dates: start: 20100210, end: 20100708
  19. FOLIC ACID [Concomitant]
     Dates: start: 20080730, end: 20081118
  20. FOLIC ACID [Concomitant]
     Dates: start: 20090223, end: 20100626
  21. DICLOFENAC SODIUM [Concomitant]
     Indication: RHEUMATOID ARTHRITIS
     Dates: start: 20050811
  22. TEPRENONE [Concomitant]
     Indication: GASTRITIS PROPHYLAXIS
     Dates: start: 20070501, end: 20070715
  23. ALENDRONATE SODIUM [Concomitant]
     Indication: OSTEOPOROSIS
     Dates: start: 20071225
  24. ALENDRONATE SODIUM [Concomitant]
     Dates: start: 20091225
  25. SERRAPEPTASE [Concomitant]
     Dosage: AS NEEDED
     Dates: start: 20080610
  26. AMBROXOL HYDROCHLORIDE [Concomitant]
     Dosage: AS NEEDED
     Dates: start: 20080610
  27. LOXOPROFEN SODIUM [Concomitant]
     Dosage: AS NEEDED.
     Dates: start: 20090415
  28. CEFCAPENE PIVOXIL HYDROCHLORIDE [Concomitant]
     Dates: start: 20100606, end: 20100616

REACTIONS (1)
  - ORGANISING PNEUMONIA [None]
